FAERS Safety Report 7138905-3 (Version None)
Quarter: 2010Q4

REPORT INFORMATION
  Report Type: 
  Country: None (occurrence: None)
  Receive Date: 20101206
  Receipt Date: 20100224
  Transmission Date: 20110411
  Serious: No
  Sender: FDA-Public Use
  Company Number: US-ABBOTT-10P-163-0629267-00

PATIENT
  Age: 4 Year
  Sex: Female

DRUGS (3)
  1. OMNICEF [Suspect]
     Indication: SINUSITIS
     Dates: start: 19960101, end: 19960101
  2. CLARITIN [Concomitant]
  3. ALUPENT [Concomitant]

REACTIONS (1)
  - URTICARIA [None]
